FAERS Safety Report 4706798-7 (Version None)
Quarter: 2005Q3

REPORT INFORMATION
  Report Type: 
  Country: None (occurrence: None)
  Receive Date: 20050705
  Receipt Date: 20050623
  Transmission Date: 20060218
  Serious: Yes (Hospitalization)
  Sender: FDA-Public Use
  Company Number: 163-20785-05040551

PATIENT
  Age: 53 Year
  Sex: Female
  Weight: 61 kg

DRUGS (41)
  1. THALOMID [Suspect]
     Indication: MULTIPLE MYELOMA
     Dosage: SEE IMAGE
     Route: 048
     Dates: start: 20040721, end: 20040901
  2. THALOMID [Suspect]
     Indication: MULTIPLE MYELOMA
     Dosage: SEE IMAGE
     Route: 048
     Dates: start: 20041124, end: 20041210
  3. THALOMID [Suspect]
     Indication: MULTIPLE MYELOMA
     Dosage: SEE IMAGE
     Route: 048
     Dates: start: 20050428, end: 20050501
  4. DEXAMETHASONE [Suspect]
     Indication: MULTIPLE MYELOMA
     Dosage: SEE IMAGE
     Route: 048
     Dates: start: 20040721, end: 20040901
  5. DEXAMETHASONE [Suspect]
     Indication: MULTIPLE MYELOMA
     Dosage: SEE IMAGE
     Route: 048
     Dates: start: 20050119, end: 20050122
  6. DEXAMETHASONE [Suspect]
     Indication: MULTIPLE MYELOMA
     Dosage: SEE IMAGE
     Route: 048
     Dates: start: 20041206
  7. MELPHALAN (MELPHALAN) [Suspect]
     Indication: MULTIPLE MYELOMA
     Dosage: SEE IMAGE
     Route: 042
     Dates: start: 20041014, end: 20041014
  8. MELPHALAN (MELPHALAN) [Suspect]
     Indication: MULTIPLE MYELOMA
     Dosage: SEE IMAGE
     Route: 042
     Dates: start: 20050120, end: 20050120
  9. CISPLATIN [Suspect]
     Indication: MULTIPLE MYELOMA
     Dosage: 447 MG, QD, ORAL
     Route: 048
     Dates: start: 20050428, end: 20050501
  10. ADRIAMYCIN PFS [Suspect]
     Indication: MULTIPLE MYELOMA
     Dosage: 45 MG, QD, ORAL
     Route: 048
     Dates: start: 20050428, end: 20050501
  11. CYCLOPHOSPHAMIDE [Suspect]
     Indication: MULTIPLE MYELOMA
     Dosage: 11 MG, QD, ORAL
     Route: 048
     Dates: start: 20050428, end: 20050501
  12. ETOPOSIDE [Suspect]
     Indication: MULTIPLE MYELOMA
     Dosage: 11 MG, QD, ORAL
     Route: 048
     Dates: start: 20050428, end: 20050501
  13. BORTEZOMIB (BORTEZOMIB) [Suspect]
     Indication: MULTIPLE MYELOMA
     Dosage: SEE IMAGE
     Route: 042
     Dates: start: 20050428, end: 20050428
  14. BORTEZOMIB (BORTEZOMIB) [Suspect]
     Indication: MULTIPLE MYELOMA
     Dosage: SEE IMAGE
     Route: 042
     Dates: start: 20050501, end: 20050501
  15. BORTEZOMIB (BORTEZOMIB) [Suspect]
     Indication: MULTIPLE MYELOMA
     Dosage: SEE IMAGE
     Route: 042
     Dates: start: 20050505, end: 20050505
  16. BORTEZOMIB (BORTEZOMIB) [Suspect]
     Indication: MULTIPLE MYELOMA
     Dosage: SEE IMAGE
     Route: 042
     Dates: start: 20050508, end: 20050508
  17. ARANESP [Concomitant]
  18. FOLIC ACID [Concomitant]
  19. NIFEREX (POLYSACCHARIDE-IRON COMPLEX) [Concomitant]
  20. CALCIUM (CALCIUM) [Concomitant]
  21. FENTANYL PATCH (FENTANYL) [Concomitant]
  22. LEVAQUIN [Concomitant]
  23. VORICONAZOLE (VORICONAZOLE) [Concomitant]
  24. ZANTAC [Concomitant]
  25. DIFLUCAN [Concomitant]
  26. AREDIA [Concomitant]
  27. VALCYTE [Concomitant]
  28. ACYCLOVIR [Concomitant]
  29. REGLAN [Concomitant]
  30. VANCOMYCIN [Concomitant]
  31. PHYTONADIONE [Concomitant]
  32. EMED (EMEDASTINE) [Concomitant]
  33. PRIMAXIN (PRIMAXIN) [Concomitant]
  34. TOBRAMYCIN [Concomitant]
  35. IMODIUM [Concomitant]
  36. ATIVAN [Concomitant]
  37. FLAGYL [Concomitant]
  38. SANDOSTATIN [Concomitant]
  39. COMPAZINE [Concomitant]
  40. PROTONIX [Concomitant]
  41. PAXIL [Concomitant]

REACTIONS (35)
  - ANXIETY [None]
  - ASCITES [None]
  - ATELECTASIS [None]
  - BLOOD CULTURE POSITIVE [None]
  - BLOOD LACTATE DEHYDROGENASE INCREASED [None]
  - BLOOD MAGNESIUM DECREASED [None]
  - CHILLS [None]
  - CHOLECYSTITIS CHRONIC [None]
  - CHOLELITHIASIS [None]
  - COLITIS [None]
  - DIARRHOEA [None]
  - DIZZINESS [None]
  - DRUG TOLERANCE DECREASED [None]
  - DRUG WITHDRAWAL SYNDROME [None]
  - FATIGUE [None]
  - FEELING HOT [None]
  - FEELING JITTERY [None]
  - GAMMA-GLUTAMYLTRANSFERASE INCREASED [None]
  - HEART RATE INCREASED [None]
  - HIATUS HERNIA [None]
  - HYPOTENSION [None]
  - LEIOMYOMA [None]
  - LUNG INFECTION [None]
  - MUCOSAL INFLAMMATION [None]
  - NAUSEA [None]
  - OEDEMA MUCOSAL [None]
  - PANCYTOPENIA [None]
  - PETECHIAE [None]
  - PLEURAL EFFUSION [None]
  - PYREXIA [None]
  - RHINORRHOEA [None]
  - SEPSIS [None]
  - STAPHYLOCOCCAL INFECTION [None]
  - VOMITING [None]
  - WHITE BLOOD CELL COUNT INCREASED [None]
